FAERS Safety Report 8363877-3 (Version None)
Quarter: 2012Q1

REPORT INFORMATION
  Report Type: 
  Country: None (occurrence: None)
  Receive Date: 20120323
  Receipt Date: 20111221
  Transmission Date: 20120608
  Serious: Yes (Hospitalization, Other)
  Sender: FDA-Public Use
  Company Number: 163-21880-11113759

PATIENT
  Age: 74 Year
  Sex: Female

DRUGS (1)
  1. REVLIMID [Suspect]
     Indication: MULTIPLE MYELOMA
     Dosage: 10 MG, 2 IN 1 D, PO
     Route: 048
     Dates: start: 20110101

REACTIONS (3)
  - WHITE BLOOD CELL COUNT DECREASED [None]
  - MULTIPLE MYELOMA [None]
  - NEUTROPHIL COUNT DECREASED [None]
